FAERS Safety Report 25311037 (Version 2)
Quarter: 2025Q2

REPORT INFORMATION
  Report Type: Spontaneous
  Country: AU (occurrence: AU)
  Receive Date: 20250514
  Receipt Date: 20250617
  Transmission Date: 20250717
  Serious: Yes (Other)
  Sender: SANDOZ
  Company Number: AU-SCIGEN-2025SCI000637

PATIENT
  Age: 47 Year
  Sex: Female

DRUGS (5)
  1. METHOXYFLURANE [Suspect]
     Active Substance: METHOXYFLURANE
     Indication: Migraine
     Dosage: 3 ML, QMO (THREE TIMES A WEEK (9??ML /WK) FROM THE PAST 8A?YEARS) ML
     Route: 065
  2. METHOXYFLURANE [Suspect]
     Active Substance: METHOXYFLURANE
     Indication: Muscle spasms
  3. ZOLEDRONIC ACID [Suspect]
     Active Substance: ZOLEDRONIC ACID
     Indication: Osteitis deformans
     Route: 065
  4. ZOLEDRONIC ACID [Suspect]
     Active Substance: ZOLEDRONIC ACID
     Indication: Bone disorder
  5. ZOLEDRONIC ACID [Suspect]
     Active Substance: ZOLEDRONIC ACID
     Indication: Fluorosis

REACTIONS (7)
  - Fluorosis [Unknown]
  - Acetabulum fracture [Unknown]
  - Bone pain [Unknown]
  - Renal impairment [Unknown]
  - Pain [Not Recovered/Not Resolved]
  - Intentional product misuse [Unknown]
  - Drug ineffective [Unknown]
